FAERS Safety Report 25401229 (Version 1)
Quarter: 2025Q2

REPORT INFORMATION
  Report Type: Spontaneous
  Country: CA (occurrence: CA)
  Receive Date: 20250605
  Receipt Date: 20250605
  Transmission Date: 20250717
  Serious: Yes (Hospitalization, Other)
  Sender: PFIZER
  Company Number: CA-PFIZER INC-202500110834

PATIENT
  Age: 46 Year
  Sex: Female

DRUGS (2)
  1. ABRILADA [Suspect]
     Active Substance: ADALIMUMAB-AFZB
     Indication: Crohn^s disease
     Route: 058
     Dates: start: 20250411
  2. ABRILADA [Suspect]
     Active Substance: ADALIMUMAB-AFZB
     Route: 058
     Dates: start: 2025

REACTIONS (7)
  - Streptococcal infection [Not Recovered/Not Resolved]
  - Clostridium difficile infection [Recovering/Resolving]
  - Diabetes mellitus [Unknown]
  - Postmenopausal haemorrhage [Unknown]
  - Breast mass [Unknown]
  - Blood iron decreased [Unknown]
  - Vitamin D decreased [Unknown]

NARRATIVE: CASE EVENT DATE: 20250101
